FAERS Safety Report 9219481 (Version 1)
Quarter: 2013Q2

REPORT INFORMATION
  Report Type: Spontaneous
  Country: US (occurrence: None)
  Receive Date: 20130405
  Receipt Date: 20130405
  Transmission Date: 20140414
  Serious: Yes (Other)
  Sender: FDA-Public Use
  Company Number: US-DEXPHARM-20130145

PATIENT
  Age: 21 Year
  Sex: Male
  Weight: 63.49 kg

DRUGS (2)
  1. OMEPRAZOLE [Suspect]
     Indication: GASTROOESOPHAGEAL REFLUX DISEASE
     Route: 048
     Dates: start: 20130311, end: 20130321
  2. IBUPROFEN 800 MG [Suspect]
     Indication: TOOTHACHE

REACTIONS (11)
  - Fall [None]
  - Hyperhidrosis [None]
  - Eyelid bleeding [None]
  - Confusional state [None]
  - Memory impairment [None]
  - Nausea [None]
  - Vomiting [None]
  - Dizziness [None]
  - Concussion [None]
  - Blood pressure increased [None]
  - Toothache [None]
